FAERS Safety Report 8612843-9 (Version None)
Quarter: 2012Q3

REPORT INFORMATION
  Report Type: 
  Country: None (occurrence: None)
  Receive Date: 20120822
  Receipt Date: 20120201
  Transmission Date: 20120928
  Serious: No
  Sender: FDA-Public Use
  Company Number: US-ASTRAZENECA-2011SE17574

PATIENT
  Age: 58 Year
  Sex: Male

DRUGS (5)
  1. CRESTOR [Suspect]
     Route: 048
  2. MUCINEX [Suspect]
     Route: 065
  3. SYMBICORT [Suspect]
     Dosage: 160/4.5 UG UNKNOWN FREQUENCY
     Route: 055
  4. NEXIUM [Concomitant]
     Route: 048
  5. RHINOCORT [Suspect]
     Route: 045

REACTIONS (3)
  - DRUG DOSE OMISSION [None]
  - DYSPNOEA [None]
  - GASTROOESOPHAGEAL REFLUX DISEASE [None]
